FAERS Safety Report 18407581 (Version 2)
Quarter: 2020Q4

REPORT INFORMATION
  Report Type: Report from Study
  Country: ES (occurrence: ES)
  Receive Date: 20201021
  Receipt Date: 20201202
  Transmission Date: 20210114
  Serious: Yes (Hospitalization, Other)
  Sender: FDA-Public Use
  Company Number: ES-EMD SERONO-9192475

PATIENT
  Age: 51 Year
  Sex: Male

DRUGS (1)
  1. REBIF [Suspect]
     Active Substance: INTERFERON BETA-1A
     Indication: MULTIPLE SCLEROSIS
     Dosage: 44 (UNSPECIFIED UNIT)
     Dates: start: 20200521

REACTIONS (10)
  - Loss of consciousness [Recovered/Resolved]
  - Multiple sclerosis relapse [Unknown]
  - Blood pressure abnormal [Unknown]
  - Cerebrovascular accident [Unknown]
  - Fall [Unknown]
  - Intervertebral disc degeneration [Recovering/Resolving]
  - Product availability issue [Not Recovered/Not Resolved]
  - Unevaluable event [Unknown]
  - Epilepsy [Unknown]
  - Dizziness [Unknown]

NARRATIVE: CASE EVENT DATE: 2020
